FAERS Safety Report 4893698-5 (Version None)
Quarter: 2005Q4

REPORT INFORMATION
  Report Type: 
  Country: None (occurrence: None)
  Receive Date: 20051223
  Receipt Date: 20051108
  Transmission Date: 20060501
  Serious: No
  Sender: FDA-Public Use
  Company Number: 2005PV004085

PATIENT
  Age: 41 Year
  Sex: Female
  Weight: 68.4932 kg

DRUGS (7)
  1. SYMLIN [Suspect]
     Indication: DIABETES MELLITUS INSULIN-DEPENDENT
     Dosage: 150 MCG; 15 MCG : TID; SC
     Route: 058
     Dates: start: 20051108, end: 20051108
  2. SYMLIN [Suspect]
     Indication: DIABETES MELLITUS INSULIN-DEPENDENT
     Dosage: 150 MCG; 15 MCG : TID; SC
     Route: 058
     Dates: start: 20051108
  3. HUMALOG PUMP [Concomitant]
  4. CAPTOPRIL [Concomitant]
  5. LASIX [Concomitant]
  6. SYNTHROID [Concomitant]
  7. TRAZODONE [Concomitant]

REACTIONS (3)
  - ACCIDENTAL OVERDOSE [None]
  - INCORRECT DOSE ADMINISTERED [None]
  - MEDICATION ERROR [None]
